FAERS Safety Report 10247524 (Version 2)
Quarter: 2015Q3

REPORT INFORMATION
  Report Type: Spontaneous
  Country: US (occurrence: US)
  Receive Date: 20140619
  Receipt Date: 20150719
  Transmission Date: 20151125
  Serious: Yes (Other)
  Sender: FDA-Public Use
  Company Number: US-SA-2014SA078307

PATIENT
  Age: 78 Year

DRUGS (4)
  1. PLAVIX [Suspect]
     Active Substance: CLOPIDOGREL BISULFATE
     Indication: ACUTE CORONARY SYNDROME
     Route: 048
     Dates: start: 20090202, end: 20100324
  2. PLAVIX [Suspect]
     Active Substance: CLOPIDOGREL BISULFATE
     Indication: MYOCARDIAL INFARCTION
     Route: 048
     Dates: start: 20090202, end: 20100324
  3. ASPIRIN. [Concomitant]
     Active Substance: ASPIRIN
  4. PLAVIX [Suspect]
     Active Substance: CLOPIDOGREL BISULFATE
     Indication: MYOCARDIAL INFARCTION
     Route: 048
     Dates: start: 20090202, end: 20100324

REACTIONS (7)
  - Ulcer haemorrhage [Unknown]
  - Dysgraphia [Unknown]
  - Nasal ulcer [Unknown]
  - Multiple injuries [Unknown]
  - Gastrointestinal haemorrhage [Unknown]
  - Pharyngeal ulceration [Unknown]
  - Hypotension [Unknown]

NARRATIVE: CASE EVENT DATE: 20100325
